FAERS Safety Report 23279392 (Version 1)
Quarter: 2023Q4

REPORT INFORMATION
  Report Type: Spontaneous
  Country: US (occurrence: US)
  Receive Date: 20231209
  Receipt Date: 20231209
  Transmission Date: 20240110
  Serious: No
  Sender: FDA-Public Use
  Company Number: US-GLAXOSMITHKLINE-USCH2023056300

PATIENT
  Age: 40 Year
  Sex: Female

DRUGS (1)
  1. ALLI [Suspect]
     Active Substance: ORLISTAT
     Indication: Product used for unknown indication
     Dosage: UNK
     Dates: start: 20231110, end: 20231111

REACTIONS (2)
  - Muscle spasms [Recovered/Resolved]
  - Diarrhoea [Recovered/Resolved]

NARRATIVE: CASE EVENT DATE: 20231111
